FAERS Safety Report 15478180 (Version 1)
Quarter: 2018Q4

REPORT INFORMATION
  Report Type: Spontaneous
  Country: DE (occurrence: DE)
  Receive Date: 20181009
  Receipt Date: 20181009
  Transmission Date: 20190205
  Serious: Yes (Congenital Anomaly, Other)
  Sender: FDA-Public Use
  Company Number: DE-TORRENT-00010908

PATIENT
  Sex: Male
  Weight: 3 kg

DRUGS (4)
  1. CIPRALEX [Suspect]
     Active Substance: ESCITALOPRAM OXALATE
     Indication: DEPRESSION
     Dosage: 20 [MG/D ]/ INITIAL 20MG/D, DOSAGE REDUCTION TO 10MG/D, LATER TO 5MG/D
     Route: 064
     Dates: start: 20170319, end: 20171226
  2. QUETIAPINE. [Suspect]
     Active Substance: QUETIAPINE
     Indication: SLEEP DISORDER
     Dosage: 50 [MG/D ]/ VARYING DOSAGE BETWEEN 25 AND 50 MG/D
     Route: 064
     Dates: start: 20170319, end: 20170814
  3. LAMICTAL [Suspect]
     Active Substance: LAMOTRIGINE
     Indication: DEPRESSION
     Dosage: 125 [MG/D ]/ SLOWLY REDUCED
     Route: 064
  4. FEMIBION [Concomitant]
     Active Substance: VITAMINS
     Indication: PROPHYLAXIS OF NEURAL TUBE DEFECT
     Dosage: UNKNOWN
     Route: 064

REACTIONS (6)
  - Ventricular septal defect [Unknown]
  - Atrial septal defect [Unknown]
  - Respiratory disorder neonatal [Recovered/Resolved]
  - Patent ductus arteriosus [Unknown]
  - Congenital choroid plexus cyst [Unknown]
  - Foetal exposure during pregnancy [Unknown]

NARRATIVE: CASE EVENT DATE: 20171226
